FAERS Safety Report 18250145 (Version 3)
Quarter: 2020Q4

REPORT INFORMATION
  Report Type: Spontaneous
  Country: US (occurrence: US)
  Receive Date: 20200910
  Receipt Date: 20201128
  Transmission Date: 20210113
  Serious: No
  Sender: FDA-Public Use
  Company Number: NVSC2020US240445

PATIENT
  Sex: Female

DRUGS (1)
  1. OMNITROPE [Suspect]
     Active Substance: SOMATROPIN
     Indication: INFERTILITY
     Dosage: 8 MG, QD
     Route: 065

REACTIONS (3)
  - Product use in unapproved indication [Unknown]
  - Product dose omission issue [Unknown]
  - Liquid product physical issue [Unknown]
